FAERS Safety Report 10224170 (Version 2)
Quarter: 2014Q2

REPORT INFORMATION
  Report Type: Spontaneous
  Country: BR (occurrence: BR)
  Receive Date: 20140609
  Receipt Date: 20140609
  Transmission Date: 20141212
  Serious: Yes (Death, Hospitalization, Other)
  Sender: FDA-Public Use
  Company Number: BR-PFIZER INC-2014106250

PATIENT
  Age: 58 Year
  Sex: Female

DRUGS (2)
  1. SUTENT [Suspect]
     Indication: GASTROINTESTINAL STROMAL TUMOUR
     Dosage: 50 MG (1 CAPSULE), 1X/DAY, CYCLIC (2 PER 1)
     Route: 048
     Dates: start: 20140305
  2. MORPHINE [Concomitant]
     Dosage: 5 MG (A HALF A TABLET OF 10 MG), 3X/DAY (EVERY 8 HOURS)
     Route: 048

REACTIONS (6)
  - Death [Fatal]
  - Vaginal haemorrhage [Unknown]
  - Anal haemorrhage [Unknown]
  - Haematochezia [Unknown]
  - Oral pain [Unknown]
  - Limb injury [Recovering/Resolving]
